FAERS Safety Report 6496466-6 (Version None)
Quarter: 2009Q4

REPORT INFORMATION
  Report Type: 
  Country: None (occurrence: None)
  Receive Date: 20091210
  Receipt Date: 20091125
  Transmission Date: 20100525
  Serious: Yes (Other)
  Sender: FDA-Public Use
  Company Number: 8052701

PATIENT
  Sex: Male

DRUGS (2)
  1. KEPPRA [Suspect]
     Dosage: (1250 MG QD, ONCE PER DAY)
  2. LAMICTAL [Concomitant]

REACTIONS (1)
  - RENAL IMPAIRMENT [None]
